FAERS Safety Report 11907236 (Version 3)
Quarter: 2019Q1

REPORT INFORMATION
  Report Type: Spontaneous
  Country: GB (occurrence: GB)
  Receive Date: 20160111
  Receipt Date: 20190115
  Transmission Date: 20190417
  Serious: Yes (Hospitalization, Other)
  Sender: FDA-Public Use
  Company Number: GB-TEVA-624393ISR

PATIENT
  Age: 36 Year
  Sex: Female

DRUGS (11)
  1. DACLATASVIR. [Interacting]
     Active Substance: DACLATASVIR
     Indication: ANTIVIRAL TREATMENT
     Route: 048
     Dates: start: 201408
  2. DESOGESTREL [Interacting]
     Active Substance: DESOGESTREL
     Indication: POLYCYSTIC OVARIES
     Route: 048
  3. NORETHINDRONE. [Interacting]
     Active Substance: NORETHINDRONE
     Dosage: 10 MILLIGRAM DAILY;
     Dates: start: 201407
  4. DACLATASVIR. [Interacting]
     Active Substance: DACLATASVIR
     Indication: HEPATITIS C
  5. RIGEVIDON [Interacting]
     Active Substance: ETHINYL ESTRADIOL\LEVONORGESTREL
     Indication: POLYCYSTIC OVARIES
     Dates: start: 20140731
  6. SOFOSBUVIR [Interacting]
     Active Substance: SOFOSBUVIR
     Indication: HEPATITIS C
  7. LEVOTHYROXINE SODIUM. [Concomitant]
     Active Substance: LEVOTHYROXINE SODIUM
     Dosage: 150 MICROGRAM DAILY;
  8. RIBAVIRIN. [Suspect]
     Active Substance: RIBAVIRIN
     Indication: ANTIVIRAL TREATMENT
     Route: 048
     Dates: start: 201408
  9. NORETHINDRONE. [Interacting]
     Active Substance: NORETHINDRONE
     Indication: POLYCYSTIC OVARIES
     Dates: start: 2010, end: 201405
  10. SOFOSBUVIR [Interacting]
     Active Substance: SOFOSBUVIR
     Indication: ANTIVIRAL TREATMENT
     Route: 048
     Dates: start: 201408
  11. RIBAVIRIN. [Interacting]
     Active Substance: RIBAVIRIN
     Indication: HEPATITIS C

REACTIONS (3)
  - Drug-induced liver injury [Not Recovered/Not Resolved]
  - Hepatic failure [Unknown]
  - Drug interaction [Unknown]
